FAERS Safety Report 26132329 (Version 1)
Quarter: 2025Q4

REPORT INFORMATION
  Report Type: Spontaneous
  Country: US (occurrence: US)
  Receive Date: 20251208
  Receipt Date: 20251208
  Transmission Date: 20260117
  Serious: No
  Sender: MYLAN
  Company Number: US-MYLANLABS-2025M1101528

PATIENT
  Age: 71 Year
  Sex: Female
  Weight: 52.62 kg

DRUGS (1)
  1. TYRVAYA [Suspect]
     Active Substance: VARENICLINE TARTRATE
     Indication: Dry eye
     Dosage: 0.03 MILLIGRAM, BID (TWICE DAILY, APPROXIMATELY AT 9:00 AM AND 9:00 PM)
     Dates: start: 20251117, end: 20251125

REACTIONS (2)
  - Diarrhoea [Unknown]
  - Sneezing [Recovered/Resolved]

NARRATIVE: CASE EVENT DATE: 20251117
